FAERS Safety Report 15552016 (Version 2)
Quarter: 2018Q4

REPORT INFORMATION
  Report Type: Spontaneous
  Country: BR (occurrence: BR)
  Receive Date: 20181025
  Receipt Date: 20181031
  Transmission Date: 20190205
  Serious: Yes (Other)
  Sender: FDA-Public Use
  Company Number: BR-PFIZER INC-2018388197

PATIENT
  Age: 33 Year
  Sex: Female

DRUGS (1)
  1. DEPO-PROVERA [Suspect]
     Active Substance: MEDROXYPROGESTERONE ACETATE
     Indication: VAGINAL HAEMORRHAGE
     Dosage: MONTHLY (ONE PER MONTH)
     Dates: start: 20180815, end: 20180915

REACTIONS (3)
  - Prescription drug used without a prescription [Unknown]
  - Drug ineffective for unapproved indication [Not Recovered/Not Resolved]
  - Adenomyosis [Not Recovered/Not Resolved]

NARRATIVE: CASE EVENT DATE: 20180815
